FAERS Safety Report 14009948 (Version 3)
Quarter: 2018Q2

REPORT INFORMATION
  Report Type: Report from Study
  Country: None (occurrence: AU)
  Receive Date: 20170925
  Receipt Date: 20180629
  Transmission Date: 20180711
  Serious: Yes (Other)
  Sender: FDA-Public Use
  Company Number: AU-ABBVIE-17S-008-2086150-00

PATIENT
  Sex: Male

DRUGS (1)
  1. LUCRIN DEPOT [Suspect]
     Active Substance: LEUPROLIDE ACETATE
     Indication: PROSTATE CANCER
     Route: 030
     Dates: start: 20170824

REACTIONS (6)
  - Renal cyst [Unknown]
  - Pollakiuria [Not Recovered/Not Resolved]
  - Renal cancer [Unknown]
  - Rib fracture [Recovering/Resolving]
  - Renal cancer metastatic [Not Recovered/Not Resolved]
  - Middle insomnia [Unknown]

NARRATIVE: CASE EVENT DATE: 2017
